FAERS Safety Report 4513201-9 (Version None)
Quarter: 2004Q4

REPORT INFORMATION
  Report Type: 
  Country: None (occurrence: None)
  Receive Date: 20041124
  Receipt Date: 20041118
  Transmission Date: 20050328
  Serious: Yes (Hospitalization)
  Sender: FDA-Public Use
  Company Number: THQ0T01226208

PATIENT
  Age: 67 Year
  Sex: Male

DRUGS (6)
  1. LANZOR (LANSOPRAZOLE) (CAPSULES) [Suspect]
     Indication: ACQUIRED PYLORIC STENOSIS
     Dosage: 15 MG (1D)
     Route: 048
     Dates: start: 19960313
  2. MODOPAR (MADOPAR) (TABLETS) [Suspect]
     Indication: CEREBELLAR INFARCTION
     Dosage: 375 MG (125 MG  3 IN 1 D)
     Route: 048
     Dates: start: 19940101, end: 19960101
  3. FUROSEMIDE [Concomitant]
  4. NITRENDIPINE (NITRENDIPINE) [Concomitant]
  5. CALCITONIN (CALCITONIN) [Concomitant]
  6. OMEPRAZOLE [Concomitant]

REACTIONS (15)
  - ABASIA [None]
  - ADVERSE DRUG REACTION [None]
  - AGNOSIA [None]
  - CLONUS [None]
  - CONFUSIONAL STATE [None]
  - DEMENTIA [None]
  - DIFFICULTY IN WALKING [None]
  - DISORIENTATION [None]
  - DRUG INTERACTION [None]
  - DYSKINESIA [None]
  - ENCEPHALOPATHY [None]
  - EYE DISORDER [None]
  - GAIT DISTURBANCE [None]
  - INCOHERENT [None]
  - INCONTINENCE [None]
